FAERS Safety Report 7600403-8 (Version None)
Quarter: 2011Q3

REPORT INFORMATION
  Report Type: 
  Country: None (occurrence: None)
  Receive Date: 20110711
  Receipt Date: 20110707
  Transmission Date: 20111222
  Serious: Yes (Other)
  Sender: FDA-Public Use
  Company Number: CH-EISAI INC-E2020-09419-SPO-CH

PATIENT
  Sex: Male
  Weight: 78 kg

DRUGS (6)
  1. CANDESARTAN CILEXETIL AND HYDROCHLOROTHIAZIDE [Concomitant]
  2. SERTRALINE HYDROCHLORIDE [Concomitant]
  3. ARICEPT [Suspect]
     Route: 048
     Dates: start: 20110321, end: 20110621
  4. SEROQUEL [Concomitant]
  5. ATORVASTATIN CALCIUM [Concomitant]
  6. PANTOPRAZOLE [Concomitant]

REACTIONS (5)
  - LIBIDO INCREASED [None]
  - INSOMNIA [None]
  - ERECTION INCREASED [None]
  - NIGHTMARE [None]
  - FEELING COLD [None]
